FAERS Safety Report 6604511-X (Version None)
Quarter: 2010Q1

REPORT INFORMATION
  Report Type: 
  Country: None (occurrence: None)
  Receive Date: 20100226
  Receipt Date: 20091106
  Transmission Date: 20100710
  Serious: No
  Sender: FDA-Public Use
  Company Number: A0815794A

PATIENT
  Age: 31 Year
  Sex: Female

DRUGS (3)
  1. LAMICTAL CD [Suspect]
     Indication: BIPOLAR DISORDER
     Dosage: 200MG PER DAY
     Route: 048
     Dates: start: 20090701
  2. SEROQUEL [Concomitant]
  3. BIRTH CONTROL PILL [Concomitant]

REACTIONS (3)
  - EYE PRURITUS [None]
  - RASH [None]
  - VOMITING [None]
